FAERS Safety Report 6748983-9 (Version None)
Quarter: 2010Q2

REPORT INFORMATION
  Report Type: 
  Country: None (occurrence: None)
  Receive Date: 20100601
  Receipt Date: 20100517
  Transmission Date: 20101027
  Serious: Yes (Other)
  Sender: FDA-Public Use
  Company Number: US-ASTRAZENECA-2009SE16064

PATIENT
  Age: 23739 Day
  Sex: Female

DRUGS (7)
  1. SEROQUEL [Suspect]
     Route: 048
     Dates: start: 20051031
  2. LEVOXYL [Concomitant]
  3. VALTREX [Concomitant]
  4. CITALOPRAM HYDROBROMIDE [Concomitant]
  5. ATIVAN [Concomitant]
  6. CELEXA [Concomitant]
  7. COLACE [Concomitant]

REACTIONS (3)
  - DIABETES MELLITUS [None]
  - DIABETIC GASTROPARESIS [None]
  - TYPE 2 DIABETES MELLITUS [None]
